APPROVED DRUG PRODUCT: IBUPROFEN
Active Ingredient: IBUPROFEN
Strength: 400MG
Dosage Form/Route: TABLET;ORAL
Application: A071334 | Product #001 | TE Code: AB
Applicant: AMNEAL PHARMACEUTICALS NY LLC
Approved: Nov 25, 1986 | RLD: No | RS: No | Type: RX